FAERS Safety Report 14269025 (Version 1)
Quarter: 2017Q4

REPORT INFORMATION
  Report Type: Spontaneous
  Country: CH (occurrence: CH)
  Receive Date: 20171211
  Receipt Date: 20171211
  Transmission Date: 20180321
  Serious: Yes (Other)
  Sender: FDA-Public Use
  Company Number: CH-OTSUKA-DJ201306708

PATIENT

DRUGS (22)
  1. QUETIAPINE. [Suspect]
     Active Substance: QUETIAPINE
     Indication: DELUSIONAL DISORDER, UNSPECIFIED TYPE
     Dosage: TABS  XR-4-18FEB12-15D ALSO
     Dates: start: 20130120, end: 20130130
  2. QUETIAPINE. [Suspect]
     Active Substance: QUETIAPINE
     Indication: DEPRESSION
  3. REMERON [Concomitant]
     Active Substance: MIRTAZAPINE
     Route: 065
     Dates: start: 2010, end: 20130218
  4. TORASEMIDE [Concomitant]
     Active Substance: TORSEMIDE
     Route: 065
     Dates: start: 2010
  5. MIRTAZAPINE. [Concomitant]
     Active Substance: MIRTAZAPINE
     Dosage: 30 MG, UNK
     Dates: start: 2010, end: 20130218
  6. LEXAPRO [Concomitant]
     Active Substance: ESCITALOPRAM OXALATE
     Dosage: 5 MG, UNK
     Dates: start: 20130318
  7. ACETYLSALICYLIC ACID [Concomitant]
     Active Substance: ASPIRIN
     Route: 065
     Dates: start: 2010, end: 20130205
  8. ABILIFY [Suspect]
     Active Substance: ARIPIPRAZOLE
     Indication: DEPRESSION
  9. SEROQUEL [Suspect]
     Active Substance: QUETIAPINE FUMARATE
     Indication: DELUSIONAL DISORDER, UNSPECIFIED TYPE
     Route: 065
     Dates: start: 20130120, end: 20130130
  10. LORAZEPAM. [Concomitant]
     Active Substance: LORAZEPAM
     Dosage: 3 MG, UNK
     Dates: start: 20130125
  11. ABILIFY [Suspect]
     Active Substance: ARIPIPRAZOLE
     Indication: DELUSIONAL DISORDER, UNSPECIFIED TYPE
     Route: 065
     Dates: start: 20130219, end: 20130307
  12. ABILIFY [Suspect]
     Active Substance: ARIPIPRAZOLE
     Indication: MENTAL DISORDER
  13. TENORMIN [Concomitant]
     Active Substance: ATENOLOL
     Route: 065
     Dates: start: 2010
  14. PREDNISOLONE. [Concomitant]
     Active Substance: PREDNISOLONE
     Dosage: 20 MG, UNK
     Dates: start: 20130316, end: 20130320
  15. TEMESTA (LORAZEPAM) [Concomitant]
     Active Substance: LORAZEPAM
     Route: 065
     Dates: start: 20130125
  16. FLUCTINE [Concomitant]
     Active Substance: FLUOXETINE HYDROCHLORIDE
     Route: 065
     Dates: start: 2010, end: 20130306
  17. SPIRICORT [Concomitant]
     Active Substance: PREDNISOLONE
     Route: 065
     Dates: start: 20130316, end: 20130320
  18. FLUOXETINE HYDROCHLORIDE. [Concomitant]
     Active Substance: FLUOXETINE HYDROCHLORIDE
     Dosage: 40 MG, UNK
     Dates: start: 2010, end: 20130306
  19. ASPIRIN. [Concomitant]
     Active Substance: ASPIRIN
     Dosage: 100 MG, UNK
     Dates: start: 2010, end: 20130205
  20. QUETIAPINE. [Suspect]
     Active Substance: QUETIAPINE
     Indication: MENTAL DISORDER
  21. PANTOZOL [Concomitant]
     Active Substance: PANTOPRAZOLE SODIUM
     Route: 065
     Dates: start: 2012
  22. CIPRALEX [Concomitant]
     Active Substance: ESCITALOPRAM OXALATE
     Route: 065
     Dates: start: 20130318

REACTIONS (3)
  - Thrombocytopenia [Recovered/Resolved]
  - Bicytopenia [Recovered/Resolved]
  - Neutropenia [Recovered/Resolved]

NARRATIVE: CASE EVENT DATE: 20130307
